FAERS Safety Report 25498842 (Version 2)
Quarter: 2025Q3

REPORT INFORMATION
  Report Type: Spontaneous
  Country: US (occurrence: US)
  Receive Date: 20250701
  Receipt Date: 20250716
  Transmission Date: 20251021
  Serious: No
  Sender: SANDOZ
  Company Number: US-SANDOZ-SDZ2025US045630

PATIENT
  Sex: Female

DRUGS (2)
  1. COMBIPATCH [Suspect]
     Active Substance: ESTRADIOL\NORETHINDRONE ACETATE
     Indication: Menopausal symptoms
     Route: 062
  2. COMBIPATCH [Suspect]
     Active Substance: ESTRADIOL\NORETHINDRONE ACETATE
     Indication: Irritability

REACTIONS (6)
  - Postmenopausal haemorrhage [Not Recovered/Not Resolved]
  - Bronchitis [Recovered/Resolved]
  - Product ineffective [Not Recovered/Not Resolved]
  - Product administered at inappropriate site [Recovered/Resolved]
  - Product adhesion issue [Not Recovered/Not Resolved]
  - Device issue [Not Recovered/Not Resolved]

NARRATIVE: CASE EVENT DATE: 20250101
